FAERS Safety Report 4467752-6 (Version None)
Quarter: 2004Q4

REPORT INFORMATION
  Report Type: 
  Country: None (occurrence: None)
  Receive Date: 20041001
  Receipt Date: 20040914
  Transmission Date: 20050328
  Serious: Yes (Hospitalization)
  Sender: FDA-Public Use
  Company Number: STA-AE-04-MTX-374

PATIENT
  Age: 68 Year
  Sex: Male

DRUGS (10)
  1. RHEUMATREX [Suspect]
     Indication: RHEUMATOID ARTHRITIS
     Dosage: 4 MG 1X PER 1 WK, ORAL
     Route: 048
     Dates: start: 20040526, end: 20040720
  2. RHEUMATREX [Suspect]
     Dosage: 6 MG 1X PER 1 WK, ORAL
     Route: 048
     Dates: start: 20040721
  3. VOLTAREN [Concomitant]
  4. PREDNISOLONE [Concomitant]
  5. BASEN (VOGLIBOSE) [Concomitant]
  6. COMELIAN (DILAZEP DIHYDROCHLORIDE) [Concomitant]
  7. TIZANIDINE HCL [Concomitant]
  8. SELBEX (TEPRENONE) [Concomitant]
  9. TOWARAT (NIFEDIPINE) [Concomitant]
  10. CAPTORIL (CAPTOPRIL) [Concomitant]

REACTIONS (1)
  - INTERSTITIAL LUNG DISEASE [None]
